FAERS Safety Report 14258836 (Version 9)
Quarter: 2023Q1

REPORT INFORMATION
  Report Type: Spontaneous
  Country: GB (occurrence: GB)
  Receive Date: 20171207
  Receipt Date: 20230223
  Transmission Date: 20230418
  Serious: Yes (Death, Hospitalization, Other)
  Sender: FDA-Public Use
  Company Number: GB-AUROBINDO-AUR-APL-2017-44019

PATIENT
  Age: 79 Year
  Sex: Female
  Weight: 79 kg

DRUGS (31)
  1. RAMIPRIL [Suspect]
     Active Substance: RAMIPRIL
     Indication: Product used for unknown indication
     Dosage: 2.5 MILLIGRAM, AS NECESSARY
     Route: 048
     Dates: start: 20140711
  2. FUROSEMIDE [Suspect]
     Active Substance: FUROSEMIDE
     Indication: Product used for unknown indication
     Dosage: 80 MILLIGRAM, AS NECESSARY
     Route: 048
     Dates: start: 20170403
  3. ADALAT CC [Suspect]
     Active Substance: NIFEDIPINE
     Indication: Product used for unknown indication
     Dosage: 60 MILLIGRAM, AS NECESSARY
     Route: 048
     Dates: start: 20091027
  4. ALFACALCIDOL [Suspect]
     Active Substance: ALFACALCIDOL
     Indication: Product used for unknown indication
     Dosage: 0.25 MICROGRAM, AS NECESSARY
     Route: 048
     Dates: start: 20161213
  5. APIDRA [Suspect]
     Active Substance: INSULIN GLULISINE
     Indication: Peritoneal dialysis
     Dosage: DOSAGE FORM: UNKNOWN
     Route: 058
     Dates: start: 20170403
  6. APIDRA [Suspect]
     Active Substance: INSULIN GLULISINE
     Dosage: 5 MILLIGRAM
     Route: 048
  7. APIDRA [Suspect]
     Active Substance: INSULIN GLULISINE
     Dosage: 20 MILLIGRAM
     Route: 042
  8. APIDRA [Suspect]
     Active Substance: INSULIN GLULISINE
     Dosage: 5 MILLIGRAM
     Route: 048
  9. APIDRA [Suspect]
     Active Substance: INSULIN GLULISINE
     Dosage: 40 MICROGRAM
     Route: 030
  10. APIDRA [Suspect]
     Active Substance: INSULIN GLULISINE
     Dosage: 60 MILLIGRAM
     Route: 048
  11. APIDRA [Suspect]
     Active Substance: INSULIN GLULISINE
     Dosage: 80 MILLIGRAM
     Route: 048
  12. APIDRA [Suspect]
     Active Substance: INSULIN GLULISINE
     Dosage: 0.25 MICROGRAM
     Route: 048
  13. APIDRA [Suspect]
     Active Substance: INSULIN GLULISINE
     Dosage: 10 LITER
     Route: 033
     Dates: start: 20170330, end: 20170712
  14. APIDRA [Suspect]
     Active Substance: INSULIN GLULISINE
     Dosage: 2.5 MILLIGRAM
     Route: 048
  15. APIDRA [Suspect]
     Active Substance: INSULIN GLULISINE
     Dosage: 10 INTERNATIONAL UNIT
     Route: 058
  16. APIDRA [Suspect]
     Active Substance: INSULIN GLULISINE
     Dosage: 12 INTERNATIONAL UNIT, 3 TIMES A DAY
     Route: 058
     Dates: start: 20170403
  17. APIDRA [Suspect]
     Active Substance: INSULIN GLULISINE
     Dosage: 12 UNITS (3 TIMES A DAY)
     Route: 058
     Dates: start: 20170403
  18. ENOXAPARIN SODIUM [Suspect]
     Active Substance: ENOXAPARIN SODIUM
     Indication: Product used for unknown indication
     Dosage: 20 MILLIGRAM, ON HEMODIALYSIS
     Route: 042
     Dates: start: 20170317
  19. DIANEAL WITH DEXTROSE [Suspect]
     Active Substance: CALCIUM CHLORIDE\DEXTROSE\MAGNESIUM CHLORIDE\SODIUM CHLORIDE\SODIUM LACTATE
     Indication: Peritoneal dialysis
     Dosage: 5 LITER, ONCE A DAY
     Route: 033
     Dates: start: 20170330, end: 20170712
  20. DIANEAL WITH DEXTROSE [Suspect]
     Active Substance: CALCIUM CHLORIDE\DEXTROSE\MAGNESIUM CHLORIDE\SODIUM CHLORIDE\SODIUM LACTATE
     Dosage: 10 LITER
     Route: 033
     Dates: start: 20170330, end: 20170712
  21. ENGERIX-B [Suspect]
     Active Substance: HEPATITIS B VIRUS SUBTYPE ADW2 HBSAG SURFACE PROTEIN ANTIGEN
     Indication: Product used for unknown indication
     Dosage: 40 MICROGRAM, AS NECESSARY
     Route: 030
     Dates: start: 20161003
  22. EPREX [Suspect]
     Active Substance: ERYTHROPOIETIN
     Indication: Anaemia
     Dosage: 3000 INTERNATIONAL UNIT, EVERY WEEK
     Route: 058
     Dates: start: 20170628
  23. EXTRANEAL [Suspect]
     Active Substance: CALCIUM CHLORIDE\ICODEXTRIN\MAGNESIUM CHLORIDE\SODIUM CHLORIDE\SODIUM LACTATE
     Indication: Peritoneal dialysis
     Dosage: 2 LITER, ONCE A DAY
     Route: 033
     Dates: start: 20170330, end: 20170712
  24. FOLIC ACID [Suspect]
     Active Substance: FOLIC ACID
     Indication: Product used for unknown indication
     Dosage: 5 MILLIGRAM, AS NECESSARY
     Route: 048
     Dates: start: 20170324
  25. ICODEXTRIN [Suspect]
     Active Substance: ICODEXTRIN
     Indication: Peritoneal dialysis
     Dosage: 2 LITER
     Route: 033
     Dates: start: 20170330, end: 20170712
  26. LEVEMIR [Suspect]
     Active Substance: INSULIN DETEMIR
     Indication: Product used for unknown indication
     Dosage: 10 INTERNATIONAL UNIT, AS NECESSARY
     Route: 058
     Dates: start: 20170403
  27. LINAGLIPTIN [Suspect]
     Active Substance: LINAGLIPTIN
     Indication: Product used for unknown indication
     Dosage: 5 MILLIGRAM
     Route: 048
     Dates: start: 20170403
  28. SODIUM BICARBONATE [Suspect]
     Active Substance: SODIUM BICARBONATE
     Indication: Product used for unknown indication
     Dosage: 1 GRAM, ONCE A DAY
     Route: 048
     Dates: start: 20170403
  29. SODIUM BICARBONATE [Suspect]
     Active Substance: SODIUM BICARBONATE
     Indication: Product used for unknown indication
     Dosage: 1 GRAM, ONCE A DAY
     Route: 048
     Dates: start: 20170403
  30. LINAGLIPTIN [Suspect]
     Active Substance: LINAGLIPTIN
     Indication: Product used for unknown indication
     Dosage: 5 MILLIGRAM, ONCE A DAY
     Route: 048
     Dates: start: 20170403
  31. VENOFER [Concomitant]
     Active Substance: IRON SUCROSE
     Indication: Product used for unknown indication
     Dosage: 100 MILLIGRAM, EVERY WEEK
     Route: 042
     Dates: start: 20170324

REACTIONS (1)
  - Cerebrovascular accident [Fatal]

NARRATIVE: CASE EVENT DATE: 20170712
